FAERS Safety Report 10626265 (Version 1)
Quarter: 2014Q4

REPORT INFORMATION
  Report Type: Spontaneous
  Country: US (occurrence: None)
  Receive Date: 20141121
  Receipt Date: 20141121
  Transmission Date: 20150529
  Serious: No
  Sender: FDA-Public Use
  Company Number: 163-10004-14080473

PATIENT
  Age: 47 Year
  Sex: Female

DRUGS (4)
  1. TRAMADOL (TRAMADOL) [Concomitant]
     Active Substance: TRAMADOL
  2. OTEZLA [Suspect]
     Active Substance: APREMILAST
     Dosage: QAM
     Route: 048
     Dates: start: 20140717
  3. TRAZADONE (TRAZADONE) [Concomitant]
  4. LIPINIRANINE (UNKNOWN) [Concomitant]

REACTIONS (3)
  - Restlessness [None]
  - Headache [None]
  - Nausea [None]

NARRATIVE: CASE EVENT DATE: 201407
